FAERS Safety Report 10338589 (Version 3)
Quarter: 2015Q1

REPORT INFORMATION
  Report Type: Spontaneous
  Country: US (occurrence: US)
  Receive Date: 20140724
  Receipt Date: 20150119
  Transmission Date: 20150720
  Serious: No
  Sender: FDA-Public Use
  Company Number: US-UNITED THERAPEUTICS-UTC-046336

PATIENT
  Age: 60 Year
  Sex: Female
  Weight: 99.77 kg

DRUGS (6)
  1. REMODULIN [Suspect]
     Active Substance: TREPROSTINIL
     Dosage: 0.012 ?G/KG, CONTINUING
     Route: 041
     Dates: start: 20140308
  2. REMODULIN [Suspect]
     Active Substance: TREPROSTINIL
     Dosage: 0.024 ?G/KG, CONTINUING
     Route: 041
     Dates: start: 20140308
  3. REMODULIN [Suspect]
     Active Substance: TREPROSTINIL
     Dosage: 0.039 ?G/KG, CONTINUING
     Route: 041
  4. DILTIAZEM [Suspect]
     Active Substance: DILTIAZEM
     Indication: PRODUCT USED FOR UNKNOWN INDICATION
  5. REMODULIN [Suspect]
     Active Substance: TREPROSTINIL
     Indication: PULMONARY ARTERIAL HYPERTENSION
     Dosage: 0.0135 ?G/KG/MIN, CONTINUING
     Route: 041
     Dates: start: 20140228
  6. WARFARIN [Concomitant]
     Active Substance: WARFARIN

REACTIONS (9)
  - Headache [Recovered/Resolved]
  - Burning sensation [Recovered/Resolved]
  - Nausea [Recovered/Resolved]
  - Confusional state [Unknown]
  - Anxiety [Unknown]
  - Malaise [Unknown]
  - Stress [Unknown]
  - Condition aggravated [Unknown]
  - Fibromyalgia [Recovered/Resolved]

NARRATIVE: CASE EVENT DATE: 2014
